FAERS Safety Report 10380004 (Version 1)
Quarter: 2014Q3

REPORT INFORMATION
  Report Type: Not Available
  Country: US (occurrence: US)
  Receive Date: 20140813
  Receipt Date: 20140813
  Transmission Date: 20150326
  Serious: No
  Sender: FDA-Public Use
  Company Number: US-LUPIN PHARMACEUTICALS INC.-E2B_00002172

PATIENT
  Age: 80 Year
  Sex: Female
  Weight: 95.34 kg

DRUGS (3)
  1. METOPROLOL [Concomitant]
     Active Substance: METOPROLOL
     Indication: HYPERTENSION
     Route: 048
  2. SIMVASTATIN TABLETS USP 80 MG [Suspect]
     Active Substance: SIMVASTATIN
     Indication: BLOOD CHOLESTEROL INCREASED
     Route: 048
  3. DIOVAN [Concomitant]
     Active Substance: VALSARTAN
     Indication: HYPERTENSION
     Route: 048

REACTIONS (2)
  - Wrong technique in drug usage process [Unknown]
  - Urticaria [Not Recovered/Not Resolved]

NARRATIVE: CASE EVENT DATE: 201404
